FAERS Safety Report 10068642 (Version 1)
Quarter: 2014Q2

REPORT INFORMATION
  Report Type: Spontaneous
  Country: FR (occurrence: FR)
  Receive Date: 20140409
  Receipt Date: 20140409
  Transmission Date: 20141212
  Serious: Yes (Life-Threatening)
  Sender: FDA-Public Use
  Company Number: FR-GLAXOSMITHKLINE-B0982973A

PATIENT
  Age: 65 Year
  Sex: Male

DRUGS (12)
  1. REVOLADE [Suspect]
     Indication: WALDENSTROM^S MACROGLOBULINAEMIA
     Route: 048
     Dates: start: 20140226, end: 20140228
  2. ZELITREX [Concomitant]
     Indication: PRODUCT USED FOR UNKNOWN INDICATION
     Dosage: 500MG PER DAY
     Route: 048
  3. NORMAL HUMAN IMMUNOGLOBULIN [Concomitant]
     Dosage: 25MG MONTHLY
     Route: 065
  4. NEORAL [Concomitant]
     Dosage: 100MG PER DAY
     Route: 048
     Dates: end: 20140213
  5. CORTANCYL [Concomitant]
     Dosage: 10MG PER DAY
     Route: 048
  6. CELLCEPT [Concomitant]
     Route: 048
     Dates: start: 201403
  7. MERONEM [Concomitant]
     Indication: INFECTION
     Route: 042
     Dates: start: 20140220
  8. TARGOCID [Concomitant]
     Indication: INFECTION
     Route: 042
     Dates: start: 20140220
  9. TAZOCILLINE [Concomitant]
     Indication: INFECTION
     Route: 042
     Dates: start: 20140221
  10. GENTAMICINE [Concomitant]
     Indication: INFECTION
     Route: 042
     Dates: start: 201402, end: 201402
  11. LASILIX [Concomitant]
     Dosage: 40MG UNKNOWN
     Route: 065
  12. PHOTOTHERAPY [Concomitant]

REACTIONS (3)
  - Acute coronary syndrome [Recovered/Resolved]
  - Electrocardiogram ST segment elevation [Recovered/Resolved]
  - Off label use [Unknown]
